FAERS Safety Report 8165591-6 (Version None)
Quarter: 2012Q1

REPORT INFORMATION
  Report Type: 
  Country: None (occurrence: None)
  Receive Date: 20120103
  Receipt Date: 20111017
  Transmission Date: 20120608
  Serious: No
  Sender: FDA-Public Use
  Company Number: AE-2011-002425

PATIENT
  Age: 61 Year
  Sex: Male
  Weight: 83.9154 kg

DRUGS (3)
  1. INCIVEK [Suspect]
     Dosage: (2 TABS),ORAL
     Route: 048
     Dates: start: 20110818
  2. PEGASYS [Concomitant]
  3. RIBAVIRIN [Concomitant]

REACTIONS (2)
  - DRUG DOSE OMISSION [None]
  - ANAEMIA [None]
